FAERS Safety Report 5163958-1 (Version None)
Quarter: 2006Q4

REPORT INFORMATION
  Report Type: 
  Country: None (occurrence: None)
  Receive Date: 20061204
  Receipt Date: 20061012
  Transmission Date: 20070319
  Serious: Yes (Life-Threatening, Other)
  Sender: FDA-Public Use
  Company Number: DE-ELI_LILLY_AND_COMPANY-DE200610002634

PATIENT
  Age: 50 Year
  Sex: Female

DRUGS (6)
  1. CYMBALTA [Suspect]
     Indication: ADJUSTMENT DISORDER WITH DEPRESSED MOOD
     Dosage: 60 MG, DAILY (1/D)
     Route: 048
     Dates: start: 20060101, end: 20061012
  2. AMANTADINE HCL [Concomitant]
     Dosage: 450 MG, DAILY (1/D)
     Route: 048
  3. L-DOPA [Concomitant]
     Dosage: 195 MG, DAILY (1/D)
     Route: 048
  4. ROPINIROLE HCL [Concomitant]
     Dosage: 10 MG, DAILY (1/D)
     Route: 048
  5. AMITRIPTYLINE HCL [Concomitant]
     Dosage: 10 MG, EACH EVENING
     Route: 048
  6. LEVOTHYROXINE SODIUM [Concomitant]
     Indication: HYPOTHYROIDISM

REACTIONS (1)
  - HYPERTENSION [None]
